FAERS Safety Report 12349589 (Version 2)
Quarter: 2016Q3

REPORT INFORMATION
  Report Type: Spontaneous
  Country: SI (occurrence: SI)
  Receive Date: 20160510
  Receipt Date: 20160701
  Transmission Date: 20161109
  Serious: Yes (Other)
  Sender: FDA-Public Use
  Company Number: SI-BEH-2016062222

PATIENT
  Age: 63 Year
  Sex: Male

DRUGS (7)
  1. NEXIUM [Concomitant]
     Active Substance: ESOMEPRAZOLE MAGNESIUM
     Route: 065
  2. VALTREX [Concomitant]
     Active Substance: VALACYCLOVIR HYDROCHLORIDE
     Route: 065
  3. PRIVIGEN [Suspect]
     Active Substance: HUMAN IMMUNOGLOBULIN G
     Indication: HYPOGAMMAGLOBULINAEMIA
     Route: 042
     Dates: start: 20150811, end: 20150811
  4. ALPHA D3 [Concomitant]
     Route: 065
  5. DUROGESIC [Concomitant]
     Active Substance: FENTANYL
     Dosage: 50 ?L, QH
     Route: 065
  6. LYRICA [Concomitant]
     Active Substance: PREGABALIN
     Route: 065
  7. LORAM [Concomitant]
     Route: 065

REACTIONS (4)
  - Pyrexia [Recovered/Resolved]
  - Tremor [Recovered/Resolved]
  - Cytokine release syndrome [Recovered/Resolved]
  - Chills [Recovered/Resolved]

NARRATIVE: CASE EVENT DATE: 20150811
